FAERS Safety Report 6695436 (Version 3)
Quarter: 2020Q3

REPORT INFORMATION
  Report Type: Report from Study
  Country: IL (occurrence: IL)
  Receive Date: 20080710
  Receipt Date: 20090130
  Transmission Date: 20201104
  Serious: Yes (Other)
  Sender: FDA-Public Use
  Company Number: IL-JNJFOC-20080606375

PATIENT
  Age: 38 Year
  Sex: Female

DRUGS (4)
  1. PREZISTA [Suspect]
     Active Substance: DARUNAVIR ETHANOLATE
     Indication: HIV INFECTION
  2. RALTEGRAVIR [Concomitant]
     Indication: HIV INFECTION
  3. ETRAVIRINE [Suspect]
     Active Substance: ETRAVIRINE
     Route: 048
  4. ETRAVIRINE [Suspect]
     Active Substance: ETRAVIRINE
     Indication: HIV INFECTION
     Route: 048

REACTIONS (4)
  - Anaemia [Unknown]
  - Skin reaction [Recovered/Resolved]
  - Thrombocytopenia [Recovered/Resolved]
  - Oropharyngeal blistering [Unknown]
